FAERS Safety Report 14893288 (Version 1)
Quarter: 2018Q2

REPORT INFORMATION
  Report Type: Spontaneous
  Country: US (occurrence: US)
  Receive Date: 20180426
  Receipt Date: 20180426
  Transmission Date: 20180711
  Serious: Yes (Other)
  Sender: FDA-Public Use
  Company Number: None

PATIENT
  Age: 9 Year
  Sex: Male
  Weight: 26.31 kg

DRUGS (9)
  1. FOCALIN [Concomitant]
     Active Substance: DEXMETHYLPHENIDATE HYDROCHLORIDE
  2. FLONASE [Concomitant]
     Active Substance: FLUTICASONE PROPIONATE
  3. VITAMIN B12 [Concomitant]
     Active Substance: CYANOCOBALAMIN
  4. CO-Q10 [Concomitant]
  5. CLONIDINE. [Concomitant]
     Active Substance: CLONIDINE
  6. L-CARNITINE [Concomitant]
     Active Substance: LEVOCARNITINE
  7. FOLINIC ACID [Concomitant]
     Active Substance: LEUCOVORIN
  8. ATOMOXETINE 40MG [Suspect]
     Active Substance: ATOMOXETINE
     Indication: ATTENTION DEFICIT/HYPERACTIVITY DISORDER
     Route: 048
  9. LAMOTRIGINE. [Concomitant]
     Active Substance: LAMOTRIGINE

REACTIONS (6)
  - Anger [None]
  - Product substitution issue [None]
  - Abnormal behaviour [None]
  - Therapeutic response changed [None]
  - Antisocial behaviour [None]
  - Irritability [None]

NARRATIVE: CASE EVENT DATE: 20180404
